FAERS Safety Report 21257252 (Version 2)
Quarter: 2025Q2

REPORT INFORMATION
  Report Type: Spontaneous
  Country: FR (occurrence: FR)
  Receive Date: 20220826
  Receipt Date: 20250420
  Transmission Date: 20250716
  Serious: Yes (Other)
  Sender: AUROBINDO
  Company Number: FR-AFSSAPS-NC20222464

PATIENT
  Age: 64 Year
  Sex: Male
  Weight: 76 kg

DRUGS (8)
  1. AMIODARONE [Suspect]
     Active Substance: AMIODARONE
     Indication: Product used for unknown indication
     Route: 065
  2. SPIRONOLACTONE [Suspect]
     Active Substance: SPIRONOLACTONE
     Indication: Product used for unknown indication
     Route: 065
  3. BISOPROLOL [Suspect]
     Active Substance: BISOPROLOL
     Indication: Product used for unknown indication
     Route: 065
  4. LANSOPRAZOLE [Suspect]
     Active Substance: LANSOPRAZOLE
     Indication: Product used for unknown indication
     Route: 065
  5. TAMSULOSIN [Suspect]
     Active Substance: TAMSULOSIN
     Indication: Product used for unknown indication
     Route: 065
  6. DAPAGLIFLOZIN [Suspect]
     Active Substance: DAPAGLIFLOZIN
     Indication: Product used for unknown indication
     Route: 065
  7. HEPARIN CALCIUM [Suspect]
     Active Substance: HEPARIN CALCIUM
     Indication: Deep vein thrombosis
     Route: 058
     Dates: start: 20220701, end: 20220719
  8. POTASSIUM CHLORIDE [Suspect]
     Active Substance: POTASSIUM CHLORIDE
     Indication: Product used for unknown indication
     Route: 065

REACTIONS (3)
  - Pulmonary mass [Unknown]
  - Heparin-induced thrombocytopenia [Recovering/Resolving]
  - Sepsis [Recovered/Resolved]

NARRATIVE: CASE EVENT DATE: 20220710
